FAERS Safety Report 22100044 (Version 1)
Quarter: 2023Q1

REPORT INFORMATION
  Report Type: Report from Study
  Country: CO (occurrence: CO)
  Receive Date: 20230315
  Receipt Date: 20230315
  Transmission Date: 20230417
  Serious: Yes (Death)
  Sender: FDA-Public Use
  Company Number: CO-ABBVIE-4336015

PATIENT
  Age: 65 Year
  Sex: Female

DRUGS (1)
  1. VENCLEXTA [Suspect]
     Active Substance: VENETOCLAX
     Indication: Chronic lymphocytic leukaemia
     Dosage: 10 MILLIGRAM
     Route: 048
     Dates: start: 20230201, end: 20230228

REACTIONS (1)
  - Death [Fatal]

NARRATIVE: CASE EVENT DATE: 20230306
